FAERS Safety Report 12556464 (Version 2)
Quarter: 2016Q3

REPORT INFORMATION
  Report Type: Report from Study
  Country: US (occurrence: US)
  Receive Date: 20160714
  Receipt Date: 20160726
  Transmission Date: 20161109
  Serious: Yes (Death, Hospitalization)
  Sender: FDA-Public Use
  Company Number: US-BAYER-2016-077059

PATIENT
  Age: 57 Year
  Sex: Female
  Weight: 82.54 kg

DRUGS (5)
  1. ADEMPAS [Suspect]
     Active Substance: RIOCIGUAT
     Indication: PULMONARY ARTERIAL HYPERTENSION
     Dosage: 2.5 MG, TID
     Route: 048
  2. REMODULIN [Concomitant]
     Active Substance: TREPROSTINIL
  3. ADEMPAS [Suspect]
     Active Substance: RIOCIGUAT
     Indication: PULMONARY ARTERIAL HYPERTENSION
     Dosage: UNK
     Route: 048
     Dates: start: 20131125
  4. ADEMPAS [Suspect]
     Active Substance: RIOCIGUAT
     Indication: PULMONARY ARTERIAL HYPERTENSION
     Dosage: 2.5 MG, TID
     Route: 048
  5. ADEMPAS [Suspect]
     Active Substance: RIOCIGUAT
     Indication: PULMONARY ARTERIAL HYPERTENSION
     Dosage: 2 MG, TID
     Route: 048

REACTIONS (12)
  - Hypovolaemia [Unknown]
  - Hospitalisation [None]
  - Urinary tract infection [None]
  - Dyspnoea [Unknown]
  - Chest pain [Unknown]
  - Hospitalisation [Not Recovered/Not Resolved]
  - Oedema [Recovering/Resolving]
  - Peripheral swelling [None]
  - Fluid overload [None]
  - Sepsis [None]
  - Death [Fatal]
  - Fluid retention [Recovering/Resolving]

NARRATIVE: CASE EVENT DATE: 201605
